FAERS Safety Report 5940612-7 (Version None)
Quarter: 2008Q4

REPORT INFORMATION
  Report Type: 
  Country: None (occurrence: None)
  Receive Date: 20081103
  Receipt Date: 20081103
  Transmission Date: 20090506
  Serious: Yes (Other)
  Sender: FDA-Public Use
  Company Number: None

PATIENT
  Age: 87 Year
  Sex: Female
  Weight: 49.3287 kg

DRUGS (1)
  1. BACTRIM [Suspect]
     Indication: STAPHYLOCOCCAL INFECTION
     Dosage: TWICE BACTRIM 400/80 PO BID X 10 DAYS
     Route: 048
     Dates: start: 20080911

REACTIONS (4)
  - BURNING SENSATION [None]
  - ERYTHEMA [None]
  - RASH MACULO-PAPULAR [None]
  - SWELLING FACE [None]
